FAERS Safety Report 14024461 (Version 3)
Quarter: 2018Q2

REPORT INFORMATION
  Report Type: Report from Study
  Country: CO (occurrence: CO)
  Receive Date: 20170929
  Receipt Date: 20180405
  Transmission Date: 20180711
  Serious: Yes (Hospitalization, Other)
  Sender: FDA-Public Use
  Company Number: CO-BAYER-2017-173780

PATIENT
  Age: 72 Year
  Sex: Female

DRUGS (3)
  1. NEXAVAR [Suspect]
     Active Substance: SORAFENIB
     Indication: THYROID CANCER STAGE IV
     Dosage: 800 MG, QD
     Route: 048
     Dates: start: 20170814, end: 20170828
  2. NEXAVAR [Suspect]
     Active Substance: SORAFENIB
     Indication: METASTASES TO LUNG
     Dosage: 400 MG, QD
     Route: 048
     Dates: start: 201709
  3. NEXAVAR [Suspect]
     Active Substance: SORAFENIB
     Indication: THYROID CANCER STAGE IV
     Dosage: 200 MG, BID
     Route: 048

REACTIONS (7)
  - Skin lesion [Recovered/Resolved]
  - Oxygen saturation decreased [Recovering/Resolving]
  - Gingival bleeding [Recovering/Resolving]
  - Hypertensive crisis [Recovering/Resolving]
  - Intentional product use issue [Recovered/Resolved]
  - Pyrexia [Recovering/Resolving]
  - Oropharyngeal plaque [Recovering/Resolving]

NARRATIVE: CASE EVENT DATE: 20170827
